FAERS Safety Report 6302681-4 (Version None)
Quarter: 2009Q3

REPORT INFORMATION
  Report Type: 
  Country: None (occurrence: None)
  Receive Date: 20090810
  Receipt Date: 20090729
  Transmission Date: 20100115
  Serious: Yes (Other)
  Sender: FDA-Public Use
  Company Number: PHHY2009JP31762

PATIENT
  Age: 68 Year
  Sex: Female

DRUGS (2)
  1. AMN107 AMN+CAP [Suspect]
     Indication: CHRONIC MYELOID LEUKAEMIA
     Dosage: 400 MG DAILY
     Route: 048
     Dates: start: 20090710, end: 20090721
  2. AMN107 AMN+CAP [Suspect]
     Dosage: 400 MG, BID
     Route: 048
     Dates: start: 20090722, end: 20090727

REACTIONS (2)
  - BLOOD BILIRUBIN INCREASED [None]
  - ELECTROCARDIOGRAM QT PROLONGED [None]
